FAERS Safety Report 12534565 (Version 1)
Quarter: 2016Q3

REPORT INFORMATION
  Report Type: Spontaneous
  Country: NL (occurrence: NL)
  Receive Date: 20160706
  Receipt Date: 20160706
  Transmission Date: 20161109
  Serious: Yes (Other)
  Sender: FDA-Public Use
  Company Number: NL-ALLERGAN-1661927US

PATIENT
  Age: 36 Year
  Sex: Female

DRUGS (2)
  1. MESALAZINE UNK [Suspect]
     Active Substance: MESALAMINE
     Indication: COLITIS ULCERATIVE
     Dosage: 500 MG, TID
     Route: 054
  2. MESALAZINE UNK [Suspect]
     Active Substance: MESALAMINE
     Indication: COLITIS ULCERATIVE
     Dosage: 1000 MG, BID
     Route: 048

REACTIONS (3)
  - Antineutrophil cytoplasmic antibody positive [Recovered/Resolved]
  - Pulmonary toxicity [Recovered/Resolved]
  - Pneumonitis [None]
